FAERS Safety Report 16974339 (Version 1)
Quarter: 2019Q4

REPORT INFORMATION
  Report Type: Spontaneous
  Country: SE (occurrence: SE)
  Receive Date: 20191030
  Receipt Date: 20191030
  Transmission Date: 20200122
  Serious: Yes (Other)
  Sender: FDA-Public Use
  Company Number: SE-TEVA-2019-SE-1128935

PATIENT
  Sex: Female

DRUGS (1)
  1. ANASTROZOLE TEVA [Suspect]
     Active Substance: ANASTROZOLE
     Route: 065

REACTIONS (1)
  - Peritonitis [Unknown]
